FAERS Safety Report 14607533 (Version 1)
Quarter: 2018Q1

REPORT INFORMATION
  Report Type: Report from Study
  Country: US (occurrence: US)
  Receive Date: 20180307
  Receipt Date: 20180307
  Transmission Date: 20180509
  Serious: Yes (Other)
  Sender: FDA-Public Use
  Company Number: PHEH2018US007270

PATIENT
  Sex: Male

DRUGS (1)
  1. METHOTREXATE. [Suspect]
     Active Substance: METHOTREXATE
     Indication: PRODUCT USED FOR UNKNOWN INDICATION
     Route: 065

REACTIONS (7)
  - Malaise [Unknown]
  - Psoriasis [Recovering/Resolving]
  - Cellulitis [Unknown]
  - Pruritus [Unknown]
  - Toxicity to various agents [Unknown]
  - Immune system disorder [Unknown]
  - Scar [Recovering/Resolving]
